FAERS Safety Report 9206854 (Version 1)
Quarter: 2013Q2

REPORT INFORMATION
  Report Type: Spontaneous
  Country: ES (occurrence: ES)
  Receive Date: 20130403
  Receipt Date: 20130403
  Transmission Date: 20140414
  Serious: Yes (Hospitalization, Other)
  Sender: FDA-Public Use
  Company Number: ES-ELI_LILLY_AND_COMPANY-ES201303008839

PATIENT
  Age: 38 Year
  Sex: Male

DRUGS (5)
  1. CYMBALTA [Suspect]
     Indication: BORDERLINE PERSONALITY DISORDER
     Dosage: UNK, UNKNOWN
  2. CYMBALTA [Interacting]
     Dosage: 1680 MG, SINGLE
     Dates: start: 20120416, end: 20120416
  3. ZYPREXA [Interacting]
     Indication: BORDERLINE PERSONALITY DISORDER
     Dosage: UNK, UNKNOWN
  4. ZYPREXA [Interacting]
     Dosage: 342 MG, SINGLE
     Route: 048
     Dates: start: 20120416, end: 20120416
  5. IBUPROFEN [Concomitant]
     Dosage: 12 MG, SINGLE
     Dates: start: 20120416, end: 20120416

REACTIONS (6)
  - Suicide attempt [Unknown]
  - Priapism [Unknown]
  - Depressed level of consciousness [Unknown]
  - Intentional overdose [Unknown]
  - Off label use [Unknown]
  - Drug interaction [Unknown]
